FAERS Safety Report 15934316 (Version 2)
Quarter: 2019Q1

REPORT INFORMATION
  Report Type: Other
  Country: IT (occurrence: IT)
  Receive Date: 20190207
  Receipt Date: 20190212
  Transmission Date: 20190417
  Serious: Yes (Hospitalization)
  Sender: FDA-Public Use
  Company Number: IT-BIOCODEX SA-201801583

PATIENT
  Age: 14 Year
  Sex: Male
  Weight: 60 kg

DRUGS (14)
  1. FRISIUM [Suspect]
     Active Substance: CLOBAZAM
     Indication: EPILEPSY
     Dosage: 1 DF, QD
     Route: 048
     Dates: start: 20180101, end: 20181026
  2. FRISIUM [Suspect]
     Active Substance: CLOBAZAM
     Dosage: 3.5 MG, QD
     Route: 048
     Dates: start: 20180127, end: 20180222
  3. FRISIUM [Suspect]
     Active Substance: CLOBAZAM
     Dosage: 4 MG, QD
     Route: 048
     Dates: start: 20180112, end: 20180126
  4. FRISIUM [Suspect]
     Active Substance: CLOBAZAM
     Dosage: UNK
  5. DIACOMIT [Suspect]
     Active Substance: STIRIPENTOL
     Dosage: 300 MG, QD
     Route: 048
     Dates: start: 20170905, end: 20171009
  6. CARBAMAZEPINE. [Suspect]
     Active Substance: CARBAMAZEPINE
     Indication: EPILEPSY
     Dosage: 1 G, QD
     Route: 048
     Dates: start: 20180101, end: 20181026
  7. DIACOMIT [Suspect]
     Active Substance: STIRIPENTOL
     Dosage: 150 MG, QD
     Route: 048
     Dates: start: 20170829, end: 20170904
  8. FRISIUM [Suspect]
     Active Substance: CLOBAZAM
     Dosage: 3 MG, QD
     Route: 048
     Dates: start: 20180223
  9. DIACOMIT [Suspect]
     Active Substance: STIRIPENTOL
     Indication: EPILEPSY
     Dosage: 2 DF, QD
     Route: 048
     Dates: start: 20180101, end: 20181026
  10. DIACOMIT [Suspect]
     Active Substance: STIRIPENTOL
     Dosage: 350 MG, QD
     Route: 048
     Dates: start: 20171010
  11. FRISIUM [Suspect]
     Active Substance: CLOBAZAM
     Dosage: 3.0 MG, QD
     Route: 048
     Dates: start: 20170803, end: 20170809
  12. FRISIUM [Suspect]
     Active Substance: CLOBAZAM
     Dosage: 5.0 MG, QD
     Route: 048
     Dates: start: 20170810, end: 20180111
  13. DIACOMIT [Suspect]
     Active Substance: STIRIPENTOL
     Dosage: 75 MG, QD
     Route: 048
     Dates: start: 20170822, end: 20170828
  14. FRISIUM [Suspect]
     Active Substance: CLOBAZAM
     Dosage: 1.5 MG, QD
     Route: 048
     Dates: start: 20170727, end: 20170802

REACTIONS (3)
  - Product use in unapproved indication [Unknown]
  - Drug ineffective [Unknown]
  - Seizure [Unknown]

NARRATIVE: CASE EVENT DATE: 20181026
